FAERS Safety Report 6603544-7 (Version None)
Quarter: 2010Q1

REPORT INFORMATION
  Report Type: 
  Country: None (occurrence: None)
  Receive Date: 20100226
  Receipt Date: 20090922
  Transmission Date: 20100710
  Serious: No
  Sender: FDA-Public Use
  Company Number: A0808489A

PATIENT
  Age: 58 Year
  Sex: Female

DRUGS (2)
  1. VALTREX [Suspect]
     Indication: GENITAL HERPES
     Route: 048
  2. ACCOLATE [Concomitant]

REACTIONS (2)
  - PRURITUS [None]
  - RASH [None]
